FAERS Safety Report 8518223-9 (Version None)
Quarter: 2012Q3

REPORT INFORMATION
  Report Type: 
  Country: None (occurrence: None)
  Receive Date: 20120718
  Receipt Date: 20111122
  Transmission Date: 20120928
  Serious: No
  Sender: FDA-Public Use
  Company Number: US-BRISTOL-MYERS SQUIBB COMPANY-16242711

PATIENT
  Age: 70 Year
  Sex: Male
  Weight: 98 kg

DRUGS (1)
  1. COUMADIN [Suspect]
     Indication: ATRIAL FIBRILLATION
     Dosage: TAKEN FOR 10-15 YRS

REACTIONS (1)
  - INCORRECT STORAGE OF DRUG [None]
